FAERS Safety Report 17255730 (Version 1)
Quarter: 2020Q1

REPORT INFORMATION
  Report Type: Spontaneous
  Country: US (occurrence: US)
  Receive Date: 20200110
  Receipt Date: 20200110
  Transmission Date: 20200409
  Serious: No
  Sender: FDA-Public Use
  Company Number: US-ALK-ABELLO A/S-2019AA004426

PATIENT

DRUGS (1)
  1. TAE BULK UNSPECIFIED [Suspect]
     Active Substance: ALLERGENIC EXTRACTS
     Indication: PRODUCT USED FOR UNKNOWN INDICATION
     Route: 060

REACTIONS (2)
  - Off label use [Unknown]
  - Incorrect route of product administration [Unknown]
